FAERS Safety Report 9222834 (Version 1)
Quarter: 2013Q2

REPORT INFORMATION
  Report Type: Spontaneous
  Country: CA (occurrence: CA)
  Receive Date: 20130410
  Receipt Date: 20130410
  Transmission Date: 20140414
  Serious: Yes (Hospitalization, Other)
  Sender: FDA-Public Use
  Company Number: CA-PFIZER INC-2013111247

PATIENT
  Age: 62 Year
  Sex: Male
  Weight: 90.9 kg

DRUGS (16)
  1. ATORVASTATIN CALCIUM [Suspect]
     Dosage: 20 MG, 1X/DAY
     Route: 048
  2. TMS [Suspect]
     Indication: BRONCHITIS
     Dosage: [TRIMETHOPRIM 160MG]/[SULFAMETHOXAZOLE 80MG], 2X/DAY
     Route: 048
  3. AMCINONIDE [Concomitant]
     Dosage: 0.1 %, 2X/DAY
     Route: 061
  4. ACETYLSALICYLIC ACID [Concomitant]
     Dosage: 325 MG, DAILY
     Route: 048
  5. CLINDAMYCIN [Concomitant]
     Dosage: 1 % SOLUTION TWICE DAILY
     Route: 061
  6. DILTIAZEM [Concomitant]
     Dosage: 180 MG, DAILY
     Route: 048
  7. ERYTHROMYCIN [Concomitant]
     Dosage: 2-3 TIMES PER DAY
     Route: 047
  8. FUCIDIN [Concomitant]
     Dosage: UNK, 2X/DAY
     Route: 061
  9. IRBESARTAN [Concomitant]
     Dosage: 300 MG, DAILY
     Route: 048
  10. LITHIUM [Concomitant]
     Indication: BIPOLAR DISORDER
     Dosage: 300 MG, 3X/DAY
     Route: 048
     Dates: start: 1998
  11. METFORMIN [Concomitant]
     Dosage: 500 MG, 3X/DAY
     Route: 048
  12. MURINE [Concomitant]
     Dosage: 1 GTT, OR EVERY 6 HOURS AS NEEDED
  13. SENNOSIDE [Concomitant]
     Dosage: 17.2 MG, 2X/DAY
     Route: 048
  14. VITAMIN B12 [Concomitant]
     Dosage: 1200 UG, DAILY
     Route: 048
  15. TERBINAFINE [Concomitant]
     Dosage: UNK, TWICE DAILY
     Route: 061
  16. KETOCONAZOLE [Concomitant]
     Dosage: UNK, DAILY

REACTIONS (8)
  - Pancytopenia [Recovered/Resolved]
  - Petechiae [Unknown]
  - Melaena [Unknown]
  - Renal failure acute [Recovered/Resolved]
  - Fatigue [Unknown]
  - Liver function test abnormal [Recovered/Resolved]
  - Prothrombin time prolonged [Unknown]
  - General physical health deterioration [Unknown]
